FAERS Safety Report 14345095 (Version 1)
Quarter: 2018Q1

REPORT INFORMATION
  Report Type: Other
  Country: FR (occurrence: FR)
  Receive Date: 20180103
  Receipt Date: 20180103
  Transmission Date: 20180509
  Serious: Yes (Hospitalization, Other)
  Sender: FDA-Public Use
  Company Number: FR-ASPENFR-201700141

PATIENT
  Age: 70 Year
  Sex: Female

DRUGS (2)
  1. LOVENOX [Suspect]
     Active Substance: ENOXAPARIN SODIUM
     Indication: PRODUCT USED FOR UNKNOWN INDICATION
     Dosage: 0.3 IV; 0.7 SC
     Route: 065
     Dates: start: 20170728, end: 20170804
  2. ORGARAN [Suspect]
     Active Substance: DANAPAROID SODIUM
     Indication: PRODUCT USED FOR UNKNOWN INDICATION
     Dosage: 750 IU
     Route: 065
     Dates: start: 20170804, end: 20170807

REACTIONS (3)
  - Therapeutic product cross-reactivity [Recovered/Resolved]
  - Heparin-induced thrombocytopenia [Recovered/Resolved]
  - Deep vein thrombosis [Recovered/Resolved]

NARRATIVE: CASE EVENT DATE: 20170804
